FAERS Safety Report 4531770-X (Version None)
Quarter: 2004Q4

REPORT INFORMATION
  Report Type: 
  Country: None (occurrence: None)
  Receive Date: 20041220
  Receipt Date: 20041213
  Transmission Date: 20050328
  Serious: Yes (Other)
  Sender: FDA-Public Use
  Company Number: JP-ROCHE-388925

PATIENT
  Age: 9 Year
  Sex: Male

DRUGS (1)
  1. HORIZON [Suspect]
     Indication: ANXIETY
     Route: 048
     Dates: start: 20041115, end: 20041115

REACTIONS (2)
  - CONVULSION [None]
  - DYSPNOEA [None]
